FAERS Safety Report 24424969 (Version 1)
Quarter: 2024Q4

REPORT INFORMATION
  Report Type: Spontaneous
  Country: US (occurrence: US)
  Receive Date: 20241010
  Receipt Date: 20241010
  Transmission Date: 20250115
  Serious: No
  Sender: MISSION
  Company Number: US-Mission Pharmacal Company-2162802

PATIENT

DRUGS (1)
  1. THIOLA EC [Suspect]
     Active Substance: TIOPRONIN
     Indication: Cystinuria
     Dates: start: 20210802

REACTIONS (1)
  - Blood phosphorus decreased [Unknown]
